FAERS Safety Report 6022486-1 (Version None)
Quarter: 2008Q4

REPORT INFORMATION
  Report Type: 
  Country: None (occurrence: None)
  Receive Date: 20081230
  Receipt Date: 20081218
  Transmission Date: 20090506
  Serious: Yes (Other)
  Sender: FDA-Public Use
  Company Number: PHHY2008CA31598

PATIENT
  Sex: Male

DRUGS (6)
  1. DIOVAN [Suspect]
     Indication: HYPERTENSION
     Dosage: 80 MG, UNK
     Route: 048
     Dates: end: 20080911
  2. SOTALOL [Concomitant]
     Dosage: 81 UNK, BID
  3. LIPITOR [Concomitant]
     Dosage: 80 UNK, ONCE/SINGLE
  4. COVERSYL                                /BEL/ [Concomitant]
     Dosage: 4 UNK, ONCE/SINGLE
  5. ASPIRIN [Concomitant]
     Dosage: 80 UNK, ONCE/SINGLE
  6. PLAVIX [Concomitant]
     Dosage: 75 UNK, ONCE/SINGLE

REACTIONS (3)
  - ANGINA PECTORIS [None]
  - ANGIOPLASTY [None]
  - BLOOD PRESSURE INCREASED [None]
